FAERS Safety Report 26009824 (Version 1)
Quarter: 2025Q4

REPORT INFORMATION
  Report Type: Spontaneous
  Country: CN (occurrence: CN)
  Receive Date: 20251107
  Receipt Date: 20251107
  Transmission Date: 20260118
  Serious: Yes (Other)
  Sender: BAXTER
  Company Number: None

PATIENT
  Age: 46 Year
  Sex: Female

DRUGS (6)
  1. CYCLOPHOSPHAMIDE [Suspect]
     Active Substance: CYCLOPHOSPHAMIDE
     Indication: Breast cancer female
     Dosage: 0.9 G, EVERY 3 WK
     Route: 041
     Dates: start: 20251014, end: 20251014
  2. SODIUM CHLORIDE [Suspect]
     Active Substance: SODIUM CHLORIDE
     Dosage: 250 ML, 0.9% INJECTION WITH DOCETAXEL
     Route: 041
     Dates: start: 20251014, end: 20251014
  3. SODIUM CHLORIDE [Suspect]
     Active Substance: SODIUM CHLORIDE
     Dosage: 250 ML, 0.9% INJECTION WITH CYCLOPHOSPHAMIDE
     Route: 041
     Dates: start: 20251014, end: 20251014
  4. SODIUM CHLORIDE [Suspect]
     Active Substance: SODIUM CHLORIDE
     Dosage: 250 ML, 0.9% INJECTION WITH EPIRUBICIN
     Route: 041
     Dates: start: 20251014, end: 20251014
  5. DOCETAXEL [Suspect]
     Active Substance: DOCETAXEL
     Indication: Breast cancer female
     Dosage: 134 MG, EVERY 3 WK
     Route: 041
     Dates: start: 20251014, end: 20251014
  6. EPIRUBICIN HYDROCHLORIDE [Suspect]
     Active Substance: EPIRUBICIN HYDROCHLORIDE
     Indication: Breast cancer female
     Dosage: 160 MG, EVERY 3 WK
     Route: 041
     Dates: start: 20251014, end: 20251014

REACTIONS (2)
  - Nausea [Recovering/Resolving]
  - Vomiting [Recovering/Resolving]

NARRATIVE: CASE EVENT DATE: 20251014
